FAERS Safety Report 7045655-0 (Version None)
Quarter: 2010Q4

REPORT INFORMATION
  Report Type: 
  Country: None (occurrence: None)
  Receive Date: 20101014
  Receipt Date: 20100809
  Transmission Date: 20110411
  Serious: No
  Sender: FDA-Public Use
  Company Number: US-ASTRAZENECA-2010SE37276

PATIENT
  Age: 22389 Day
  Sex: Male
  Weight: 81.6 kg

DRUGS (3)
  1. SYMBICORT [Suspect]
     Indication: ASTHMA
     Dosage: 320 MCGS
     Route: 055
     Dates: start: 20070101
  2. SYMBICORT [Suspect]
     Indication: CHRONIC OBSTRUCTIVE PULMONARY DISEASE
     Dosage: 320 MCGS
     Route: 055
     Dates: start: 20070101
  3. XOLAIR [Concomitant]

REACTIONS (2)
  - DYSPNOEA [None]
  - WHEEZING [None]
